FAERS Safety Report 4278228-3 (Version None)
Quarter: 2004Q1

REPORT INFORMATION
  Report Type: 
  Country: None (occurrence: None)
  Receive Date: 20040121
  Receipt Date: 20040108
  Transmission Date: 20041129
  Serious: Yes (Hospitalization, Disabling)
  Sender: FDA-Public Use
  Company Number: K200400035

PATIENT
  Sex: Female

DRUGS (2)
  1. EPIPEN JR. [Suspect]
     Dosage: 0.15 MG, SINGLE
  2. EPIPEN JR. [Suspect]

REACTIONS (3)
  - ACCIDENTAL EXPOSURE [None]
  - FINGER AMPUTATION [None]
  - PERIPHERAL ISCHAEMIA [None]
